FAERS Safety Report 7451875-3 (Version None)
Quarter: 2011Q2

REPORT INFORMATION
  Report Type: 
  Country: None (occurrence: None)
  Receive Date: 20110502
  Receipt Date: 20110422
  Transmission Date: 20111010
  Serious: Yes (Other)
  Sender: FDA-Public Use
  Company Number: US-ASTRAZENECA-2011SE10449

PATIENT
  Age: 56 Year
  Sex: Female

DRUGS (2)
  1. SEROQUEL [Suspect]
     Route: 048
  2. NEXIUM [Suspect]
     Route: 048

REACTIONS (8)
  - MULTIPLE SCLEROSIS [None]
  - DYSKINESIA [None]
  - INSOMNIA [None]
  - ERUCTATION [None]
  - TREMOR [None]
  - MEMORY IMPAIRMENT [None]
  - PAIN IN JAW [None]
  - DYSPEPSIA [None]
